FAERS Safety Report 6165168-8 (Version None)
Quarter: 2009Q2

REPORT INFORMATION
  Report Type: 
  Country: None (occurrence: None)
  Receive Date: 20090421
  Receipt Date: 20090406
  Transmission Date: 20091009
  Serious: Yes (Hospitalization, Other)
  Sender: FDA-Public Use
  Company Number: ADE2009-0551

PATIENT
  Age: 24 Year
  Sex: Male

DRUGS (4)
  1. RISPERIDONE [Suspect]
     Indication: DELUSION
     Dosage: 6MG/DAY
  2. RISPERIDONE [Suspect]
     Indication: HALLUCINATION
     Dosage: 6MG/DAY
  3. OLANZAPINE [Suspect]
     Indication: DELUSION
     Dosage: 15MG/DAY
  4. OLANZAPINE [Suspect]
     Indication: HALLUCINATION
     Dosage: 15MG/DAY

REACTIONS (8)
  - AGITATION [None]
  - CATATONIA [None]
  - COGWHEEL RIGIDITY [None]
  - GRAND MAL CONVULSION [None]
  - NEUROLEPTIC MALIGNANT SYNDROME [None]
  - STUPOR [None]
  - URINARY TRACT INFECTION [None]
  - WAXY FLEXIBILITY [None]
